FAERS Safety Report 7771907 (Version 4)
Quarter: 2020Q1

REPORT INFORMATION
  Report Type: Spontaneous
  Country: JP (occurrence: JP)
  Receive Date: 20110124
  Receipt Date: 20200110
  Transmission Date: 20200409
  Serious: Yes (Death)
  Sender: FDA-Public Use
  Company Number: PHHY2011JP03377

PATIENT
  Age: 22 Year
  Sex: Female
  Weight: 67.8 kg

DRUGS (7)
  1. TEGRETOL [Suspect]
     Active Substance: CARBAMAZEPINE
     Indication: DEPRESSION
     Dosage: 100 MG, UNK
     Route: 065
  2. TEGRETOL [Suspect]
     Active Substance: CARBAMAZEPINE
     Route: 048
  3. FLUVOXAMINE MALEATE. [Suspect]
     Active Substance: FLUVOXAMINE MALEATE
     Indication: DEPRESSION
     Dosage: 25 MG, UNK
     Route: 065
  4. CHLORAL HYDRATE [Suspect]
     Active Substance: CHLORAL HYDRATE
     Indication: PRODUCT USED FOR UNKNOWN INDICATION
     Route: 065
  5. PHENOTHIAZINE [Suspect]
     Active Substance: PHENOTHIAZINE
     Indication: PRODUCT USED FOR UNKNOWN INDICATION
     Route: 065
  6. BROMVALERYLUREA [Suspect]
     Active Substance: BROMISOVAL
     Indication: PRODUCT USED FOR UNKNOWN INDICATION
     Route: 065
  7. ZOLPIDEM TARTRATE. [Suspect]
     Active Substance: ZOLPIDEM TARTRATE
     Indication: DEPRESSION
     Dosage: 10 MG, UNK
     Route: 065

REACTIONS (8)
  - Toxicity to various agents [Fatal]
  - Hepatic congestion [Fatal]
  - Petechiae [Fatal]
  - Pulmonary congestion [Fatal]
  - Spleen congestion [Fatal]
  - Visceral congestion [Fatal]
  - Overdose [Fatal]
  - Kidney congestion [Fatal]
